FAERS Safety Report 4780134-2 (Version None)
Quarter: 2005Q3

REPORT INFORMATION
  Report Type: 
  Country: None (occurrence: None)
  Receive Date: 20050914
  Receipt Date: 20050416
  Transmission Date: 20060218
  Serious: Yes (Hospitalization)
  Sender: FDA-Public Use
  Company Number: 163-20785-05040379

PATIENT
  Age: 56 Year
  Sex: Male
  Weight: 94 kg

DRUGS (16)
  1. THALOMID [Suspect]
     Indication: MULTIPLE MYELOMA
     Dosage: 200 MG, QD, ORAL; 200 MG, QD, ORAL; 100 MG, QD, ORAL
     Route: 048
     Dates: start: 20041019, end: 20041022
  2. THALOMID [Suspect]
     Indication: MULTIPLE MYELOMA
     Dosage: 200 MG, QD, ORAL; 200 MG, QD, ORAL; 100 MG, QD, ORAL
     Route: 048
     Dates: start: 20041122, end: 20041125
  3. THALOMID [Suspect]
     Indication: MULTIPLE MYELOMA
     Dosage: 200 MG, QD, ORAL; 200 MG, QD, ORAL; 100 MG, QD, ORAL
     Route: 048
     Dates: start: 20050109, end: 20050122
  4. DEXAMETHASONE [Suspect]
     Indication: MULTIPLE MYELOMA
     Dosage: 40 MG, QD, ORAL; 20 MG, QD, ORAL
     Route: 048
     Dates: start: 20041019, end: 20041022
  5. DEXAMETHASONE [Suspect]
     Indication: MULTIPLE MYELOMA
     Dosage: 40 MG, QD, ORAL; 20 MG, QD, ORAL
     Route: 048
     Dates: start: 20041122, end: 20041125
  6. DEXAMETHASONE [Suspect]
     Indication: MULTIPLE MYELOMA
     Dosage: 40 MG, QD, ORAL; 20 MG, QD, ORAL
     Route: 048
     Dates: start: 20050110, end: 20050113
  7. BORTEZOMIB (BORTEZOMIB) [Suspect]
     Indication: MULTIPLE MYELOMA
     Dosage: 2 MG, QD, INTRAVENOUS
     Route: 042
     Dates: start: 20041016, end: 20041019
  8. BORTEZOMIB (BORTEZOMIB) [Suspect]
     Indication: MULTIPLE MYELOMA
     Dosage: 2 MG, QD, INTRAVENOUS
     Route: 042
     Dates: start: 20041023, end: 20041026
  9. BORTEZOMIB (BORTEZOMIB) [Suspect]
     Indication: MULTIPLE MYELOMA
     Dosage: 2 MG, QD, INTRAVENOUS
     Route: 042
     Dates: start: 20041119, end: 20041122
  10. BORTEZOMIB (BORTEZOMIB) [Suspect]
     Indication: MULTIPLE MYELOMA
     Dosage: 2 MG, QD, INTRAVENOUS
     Route: 042
     Dates: start: 20041125, end: 20041128
  11. CISPLATIN [Suspect]
     Indication: MULTIPLE MYELOMA
     Dosage: 20 MG, QD, INTRAVENOUS
     Route: 042
     Dates: start: 20041019, end: 20041022
  12. CISPLATIN [Suspect]
     Indication: MULTIPLE MYELOMA
     Dosage: 20 MG, QD, INTRAVENOUS
     Route: 042
     Dates: start: 20041122, end: 20041125
  13. CYCLOPHOSPHAMIDE [Suspect]
     Indication: MULTIPLE MYELOMA
     Dosage: 800 MG, QD, INTRAVENOUS
     Route: 042
     Dates: start: 20041019, end: 20041022
  14. CYCLOPHOSPHAMIDE [Suspect]
     Indication: MULTIPLE MYELOMA
     Dosage: 800 MG, QD, INTRAVENOUS
     Route: 042
     Dates: start: 20041122, end: 20041125
  15. ETOPOSIDE [Suspect]
     Indication: MULTIPLE MYELOMA
     Dosage: 80 MG, QD, INTRAVENOUS
     Route: 042
     Dates: start: 20041019, end: 20041022
  16. ETOPOSIDE [Suspect]
     Indication: MULTIPLE MYELOMA
     Dosage: 80 MG, QD, INTRAVENOUS
     Route: 042
     Dates: start: 20041122, end: 20041125

REACTIONS (5)
  - COLITIS [None]
  - DEHYDRATION [None]
  - LUNG INFILTRATION [None]
  - PNEUMONIA [None]
  - PYREXIA [None]
